FAERS Safety Report 18472157 (Version 1)
Quarter: 2020Q4

REPORT INFORMATION
  Report Type: Report from Study
  Country: GR (occurrence: GR)
  Receive Date: 20201106
  Receipt Date: 20201106
  Transmission Date: 20210114
  Serious: Yes (Hospitalization)
  Sender: FDA-Public Use
  Company Number: GR-SHIRE-GR202015501

PATIENT

DRUGS (2)
  1. HUMAN IMMUNOGLOBULIN; HYALURONIDASE [Suspect]
     Active Substance: HUMAN IMMUNOGLOBULIN G\HYALURONIDASE RECOMBINANT HUMAN
     Dosage: UNK
     Route: 058
     Dates: start: 20190422
  2. HUMAN IMMUNOGLOBULIN; HYALURONIDASE [Suspect]
     Active Substance: HUMAN IMMUNOGLOBULIN G\HYALURONIDASE RECOMBINANT HUMAN
     Indication: BRUTON^S AGAMMAGLOBULINAEMIA
     Dosage: 400 MILLIGRAM/KILOGRAM, Q4WEEKS
     Route: 058
     Dates: start: 20190304, end: 20190304

REACTIONS (1)
  - Pilonidal cyst [Recovered/Resolved]

NARRATIVE: CASE EVENT DATE: 20190502
